FAERS Safety Report 13767420 (Version 1)
Quarter: 2017Q3

REPORT INFORMATION
  Report Type: Spontaneous
  Country: US (occurrence: US)
  Receive Date: 20170719
  Receipt Date: 20170719
  Transmission Date: 20171127
  Serious: Yes (Life-Threatening, Hospitalization)
  Sender: FDA-Public Use
  Company Number: None

PATIENT
  Age: 56 Year
  Sex: Female
  Weight: 93.52 kg

DRUGS (9)
  1. ASPRIN [Concomitant]
     Active Substance: ASPIRIN
  2. VICTOZA [Concomitant]
     Active Substance: LIRAGLUTIDE
  3. LOPRESSOR [Concomitant]
     Active Substance: METOPROLOL TARTRATE
  4. FISH OIL [Concomitant]
     Active Substance: FISH OIL
  5. LINSINIPRIL [Concomitant]
  6. PLAVIX [Concomitant]
     Active Substance: CLOPIDOGREL BISULFATE
  7. MAXZIDE [Concomitant]
     Active Substance: HYDROCHLOROTHIAZIDE\TRIAMTERENE
  8. TOUJEO [Suspect]
     Active Substance: INSULIN GLARGINE
     Indication: BLOOD GLUCOSE ABNORMAL
     Dosage: 150 U 2 TIMES DAILY INJECTION
     Dates: start: 20150506
  9. CRESTOR [Concomitant]
     Active Substance: ROSUVASTATIN CALCIUM

REACTIONS (11)
  - Dyspnoea [None]
  - Heart rate [None]
  - Fatigue [None]
  - Abdominal pain upper [None]
  - Vision blurred [None]
  - Nausea [None]
  - Blood glucose decreased [None]
  - Coronary artery occlusion [None]
  - Quality of life decreased [None]
  - Chest pain [None]
  - Blood glucose increased [None]

NARRATIVE: CASE EVENT DATE: 20150929
